FAERS Safety Report 8240295-X (Version None)
Quarter: 2012Q1

REPORT INFORMATION
  Report Type: 
  Country: None (occurrence: None)
  Receive Date: 20120328
  Receipt Date: 20120328
  Transmission Date: 20120608
  Serious: Yes (Other)
  Sender: FDA-Public Use
  Company Number: None

PATIENT
  Age: 26 Year
  Sex: Female
  Weight: 81.646 kg

DRUGS (1)
  1. FLUCONAZOLE [Suspect]
     Dosage: 1, 150MG TABLET
     Route: 048
     Dates: start: 20120130, end: 20120130

REACTIONS (10)
  - ERYTHEMA [None]
  - CHAPPED LIPS [None]
  - ACTIVITIES OF DAILY LIVING IMPAIRED [None]
  - LIP DRY [None]
  - ASTHENIA [None]
  - CHILLS [None]
  - SKIN CHAPPED [None]
  - BLISTER [None]
  - DEHYDRATION [None]
  - IMPAIRED WORK ABILITY [None]
